FAERS Safety Report 5060163-4 (Version None)
Quarter: 2006Q3

REPORT INFORMATION
  Report Type: 
  Country: None (occurrence: None)
  Receive Date: 20060724
  Receipt Date: 20060718
  Transmission Date: 20061208
  Serious: Yes (Life-Threatening)
  Sender: FDA-Public Use
  Company Number: JP-BOEHRINGER INGELHEIM PHARMACEUTICALS, INC.-2006-BP-08334NB

PATIENT
  Age: 61 Year
  Sex: Male

DRUGS (2)
  1. MICARDIS [Suspect]
     Indication: HYPERTENSION
     Route: 048
     Dates: start: 20040723, end: 20050315
  2. OTHER MEDICATION [Concomitant]
     Route: 048
     Dates: start: 20040723, end: 20050315

REACTIONS (1)
  - CEREBRAL HAEMORRHAGE [None]
